FAERS Safety Report 12042203 (Version 5)
Quarter: 2016Q3

REPORT INFORMATION
  Report Type: Report from Study
  Country: US (occurrence: US)
  Receive Date: 20160208
  Receipt Date: 20160725
  Transmission Date: 20161109
  Serious: Yes (Other)
  Sender: FDA-Public Use
  Company Number: US-JNJFOC-20151204608

PATIENT
  Age: 76 Year
  Sex: Male
  Weight: 97.52 kg

DRUGS (30)
  1. XARELTO [Suspect]
     Active Substance: RIVAROXABAN
     Indication: CONTUSION
     Dosage: WITH EVENING MEAL
     Route: 048
     Dates: start: 20151214
  2. SPIRONOLACTONE. [Concomitant]
     Active Substance: SPIRONOLACTONE
     Route: 065
  3. XARELTO [Suspect]
     Active Substance: RIVAROXABAN
     Indication: CONTUSION
     Route: 048
     Dates: start: 201512, end: 2015
  4. XARELTO [Suspect]
     Active Substance: RIVAROXABAN
     Indication: FLUID RETENTION
     Route: 048
     Dates: start: 201512, end: 2015
  5. SPIRIVA [Concomitant]
     Active Substance: TIOTROPIUM BROMIDE MONOHYDRATE
     Route: 055
  6. FAMOTIDINE. [Concomitant]
     Active Substance: FAMOTIDINE
     Route: 065
  7. XARELTO [Suspect]
     Active Substance: RIVAROXABAN
     Indication: PERIPHERAL SWELLING
     Route: 048
     Dates: start: 201512, end: 2015
  8. XARELTO [Suspect]
     Active Substance: RIVAROXABAN
     Indication: CEREBROVASCULAR ACCIDENT PROPHYLAXIS
     Route: 048
     Dates: start: 201512, end: 2015
  9. XARELTO [Suspect]
     Active Substance: RIVAROXABAN
     Indication: ATRIAL FIBRILLATION
     Route: 048
     Dates: start: 201512, end: 2015
  10. FERROUS SULFATE. [Concomitant]
     Active Substance: FERROUS SULFATE
     Route: 065
  11. AMLODIPINE [Concomitant]
     Active Substance: AMLODIPINE BESYLATE
     Route: 065
  12. VALSARTAN. [Concomitant]
     Active Substance: VALSARTAN
     Route: 065
  13. XARELTO [Suspect]
     Active Substance: RIVAROXABAN
     Indication: PERIPHERAL SWELLING
     Dosage: TIME: 8PM
     Route: 048
     Dates: start: 20151215
  14. XARELTO [Suspect]
     Active Substance: RIVAROXABAN
     Indication: CEREBROVASCULAR ACCIDENT PROPHYLAXIS
     Dosage: WITH EVENING MEAL
     Route: 048
     Dates: start: 20151214
  15. VITAMIN D [Concomitant]
     Active Substance: CHOLECALCIFEROL
     Route: 065
  16. XARELTO [Suspect]
     Active Substance: RIVAROXABAN
     Indication: CONTUSION
     Dosage: TIME: 8PM
     Route: 048
     Dates: start: 20151215
  17. FISH OIL [Concomitant]
     Active Substance: FISH OIL
     Dosage: DOSE: 2000UNITS
     Route: 065
  18. ALBUTEROL SULFATE. [Concomitant]
     Active Substance: ALBUTEROL SULFATE
     Route: 055
  19. XARELTO [Suspect]
     Active Substance: RIVAROXABAN
     Indication: PERIPHERAL SWELLING
     Dosage: WITH EVENING MEAL
     Route: 048
     Dates: start: 20151214
  20. XARELTO [Suspect]
     Active Substance: RIVAROXABAN
     Indication: ATRIAL FIBRILLATION
     Dosage: WITH EVENING MEAL
     Route: 048
     Dates: start: 20151214
  21. FUROSEMIDE. [Concomitant]
     Active Substance: FUROSEMIDE
     Route: 065
  22. POTASSIUM [Concomitant]
     Active Substance: POTASSIUM
     Route: 065
  23. XARELTO [Suspect]
     Active Substance: RIVAROXABAN
     Indication: FLUID RETENTION
     Dosage: WITH EVENING MEAL
     Route: 048
     Dates: start: 20151214
  24. XARELTO [Suspect]
     Active Substance: RIVAROXABAN
     Indication: FLUID RETENTION
     Dosage: TIME: 8PM
     Route: 048
     Dates: start: 20151215
  25. AMIODARONE [Concomitant]
     Active Substance: AMIODARONE
     Route: 065
  26. CARVEDILOL. [Concomitant]
     Active Substance: CARVEDILOL
     Route: 065
  27. XARELTO [Suspect]
     Active Substance: RIVAROXABAN
     Indication: CEREBROVASCULAR ACCIDENT PROPHYLAXIS
     Dosage: TIME: 8PM
     Route: 048
     Dates: start: 20151215
  28. XARELTO [Suspect]
     Active Substance: RIVAROXABAN
     Indication: ATRIAL FIBRILLATION
     Dosage: TIME: 8PM
     Route: 048
     Dates: start: 20151215
  29. ASPIRIN. [Concomitant]
     Active Substance: ASPIRIN
     Route: 065
  30. RANEXA [Concomitant]
     Active Substance: RANOLAZINE
     Route: 065

REACTIONS (6)
  - Fluid retention [Recovering/Resolving]
  - Peripheral swelling [Unknown]
  - Atrial fibrillation [Recovering/Resolving]
  - Dyspnoea [Recovering/Resolving]
  - Fall [Recovered/Resolved]
  - Contusion [Unknown]

NARRATIVE: CASE EVENT DATE: 20151214
